FAERS Safety Report 4348329-X (Version None)
Quarter: 2004Q2

REPORT INFORMATION
  Report Type: 
  Country: None (occurrence: None)
  Receive Date: 20040427
  Receipt Date: 20031224
  Transmission Date: 20050107
  Serious: Yes (Death)
  Sender: FDA-Public Use
  Company Number: JP-GLAXOSMITHKLINE-B0318650A

PATIENT
  Age: 8 Year
  Sex: Male

DRUGS (2)
  1. MELPHALAN [Suspect]
     Indication: STEM CELL TRANSPLANT
     Route: 042
     Dates: start: 20030617
  2. SANDIMMUNE [Suspect]

REACTIONS (4)
  - ARRHYTHMIA [None]
  - ASCITES [None]
  - CARDIAC FAILURE [None]
  - FACE OEDEMA [None]
